FAERS Safety Report 6852286-1 (Version None)
Quarter: 2010Q3

REPORT INFORMATION
  Report Type: 
  Country: None (occurrence: None)
  Receive Date: 20100717
  Receipt Date: 20071108
  Transmission Date: 20110219
  Serious: No
  Sender: FDA-Public Use
  Company Number: US-PFIZER INC-2007096575

PATIENT
  Sex: Female
  Weight: 73 kg

DRUGS (17)
  1. CHANTIX [Suspect]
     Indication: EX-TOBACCO USER
     Dates: start: 20070901
  2. OLANZAPINE [Concomitant]
     Indication: HALLUCINATION, AUDITORY
  3. LAMOTRIGINE [Concomitant]
  4. CLONAZEPAM [Concomitant]
  5. TEMAZEPAM [Concomitant]
  6. SUDAFED 12 HOUR [Concomitant]
  7. LOPERAMIDE [Concomitant]
  8. CAFFEINE [Concomitant]
  9. ACETAMINOPHEN [Concomitant]
  10. ASCORBIC ACID [Concomitant]
  11. CALCIUM [Concomitant]
  12. LORATADINE [Concomitant]
  13. VITAMIN D [Concomitant]
  14. VITAMINS [Concomitant]
  15. VITAMIN B COMPLEX CAP [Concomitant]
  16. FLUNISOLIDE [Concomitant]
  17. ALBUTEROL [Concomitant]

REACTIONS (2)
  - DRUG EFFECT DECREASED [None]
  - HEADACHE [None]
